FAERS Safety Report 7715184-7 (Version None)
Quarter: 2011Q3

REPORT INFORMATION
  Report Type: 
  Country: None (occurrence: None)
  Receive Date: 20110829
  Receipt Date: 20110824
  Transmission Date: 20111222
  Serious: Yes (Other)
  Sender: FDA-Public Use
  Company Number: US-BRISTOL-MYERS SQUIBB COMPANY-15772494

PATIENT
  Age: 44 Year
  Sex: Female
  Weight: 79 kg

DRUGS (5)
  1. IXABEPILONE [Suspect]
     Indication: BREAST CANCER
     Dosage: RECENT DOSE: 12AUG2010
     Route: 042
     Dates: start: 20100603
  2. HYDROCODONE BITARTRATE AND ACETAMINOPHEN [Concomitant]
     Indication: PAIN
     Dosage: 1DF: 5-500MG
     Route: 048
  3. CYTOXAN [Suspect]
     Indication: BREAST CANCER
     Dosage: RECENT DOSE:13MAY2010
     Route: 042
     Dates: start: 20100309
  4. BENICAR HCT [Concomitant]
     Indication: HYPERTENSION
     Dosage: 1DF:40-12.5MG
     Route: 048
  5. ADRIAMYCIN PFS [Suspect]
     Indication: BREAST CANCER
     Dosage: RECENT DOSE:13MAY2010
     Route: 042
     Dates: start: 20100309

REACTIONS (1)
  - OSTEONECROSIS [None]
